FAERS Safety Report 23181261 (Version 3)
Quarter: 2023Q4

REPORT INFORMATION
  Report Type: Report from Study
  Country: GB (occurrence: GB)
  Receive Date: 20231114
  Receipt Date: 20231205
  Transmission Date: 20240109
  Serious: Yes (Other)
  Sender: FDA-Public Use
  Company Number: GB-ALXN-A202303731

PATIENT
  Age: 38 Year
  Sex: Male

DRUGS (3)
  1. SOLIRIS [Suspect]
     Active Substance: ECULIZUMAB
     Indication: Paroxysmal nocturnal haemoglobinuria
     Dosage: UNK
     Route: 065
  2. SOLIRIS [Suspect]
     Active Substance: ECULIZUMAB
     Dosage: 1200 MG, Q2W
     Route: 065
     Dates: end: 20190927
  3. SOLIRIS [Suspect]
     Active Substance: ECULIZUMAB
     Dosage: 1500 MG, Q2W
     Route: 042

REACTIONS (14)
  - Dementia with Lewy bodies [Unknown]
  - Mental impairment [Unknown]
  - Hallucination [Recovering/Resolving]
  - Haematochezia [Unknown]
  - Ear infection [Unknown]
  - Lethargy [Unknown]
  - Presyncope [Recovered/Resolved]
  - Off label use [Unknown]
  - Device issue [Unknown]
  - Blood urine present [Recovered/Resolved]
  - Rectal tenesmus [Unknown]
  - Fatigue [Unknown]
  - Pyrexia [Recovered/Resolved]
  - Hypotension [Recovered/Resolved]

NARRATIVE: CASE EVENT DATE: 20040531
